FAERS Safety Report 18097688 (Version 1)
Quarter: 2020Q3

REPORT INFORMATION
  Report Type: Spontaneous
  Country: CA (occurrence: CA)
  Receive Date: 20200730
  Receipt Date: 20200730
  Transmission Date: 20201103
  Serious: Yes (Death, Hospitalization)
  Sender: FDA-Public Use
  Company Number: CA-BAXTER-2020BAX015112

PATIENT
  Age: 44 Year
  Sex: Female

DRUGS (6)
  1. FLUOROURACIL. [Suspect]
     Active Substance: FLUOROURACIL
     Indication: BREAST CANCER STAGE II
     Dosage: DOSAGE FORM: NOT SPECIFIED
     Route: 065
  2. GRANULOCYTE COLONY STIMULATING FACTOR [Concomitant]
     Active Substance: GRANULOCYTE COLONY-STIMULATING FACTOR NOS
     Indication: PRODUCT USED FOR UNKNOWN INDICATION
     Route: 065
  3. EPIRUBICIN HYDROCHLORIDE. [Suspect]
     Active Substance: EPIRUBICIN HYDROCHLORIDE
     Indication: BREAST CANCER STAGE II
     Route: 065
  4. PROCYTOX (CYCLOPHOSPHAMIDE) 2000MG/VIAL [Suspect]
     Active Substance: CYCLOPHOSPHAMIDE
     Indication: BREAST CANCER STAGE II
     Dosage: DOSAGE FORM: NOT SPECIFIED
     Route: 065
  5. CICLOSPORIN [Suspect]
     Active Substance: CYCLOSPORINE
     Indication: AUTOIMMUNE NEUTROPENIA
     Dosage: DOSAGE FORM: NOT SPECIFIED
     Route: 048
  6. NEUPOGEN [Concomitant]
     Active Substance: FILGRASTIM
     Indication: PRODUCT USED FOR UNKNOWN INDICATION
     Dosage: DOSAGE FORM: SOLUTION INTRAVENOUS
     Route: 065

REACTIONS (21)
  - Breast calcifications [Fatal]
  - Lung neoplasm [Fatal]
  - Lymphadenopathy mediastinal [Fatal]
  - Hepatic steatosis [Fatal]
  - Pyrexia [Fatal]
  - Neoplasm progression [Fatal]
  - Pulmonary mass [Fatal]
  - Second primary malignancy [Fatal]
  - Adrenal mass [Fatal]
  - Vomiting [Fatal]
  - Renal failure [Fatal]
  - Breast mass [Fatal]
  - Hepatic cancer [Fatal]
  - Splenomegaly [Fatal]
  - Stomatitis [Fatal]
  - Hepatic lesion [Fatal]
  - Nausea [Fatal]
  - Acute respiratory failure [Fatal]
  - Dyspnoea [Fatal]
  - Febrile neutropenia [Fatal]
  - Hilar lymphadenopathy [Fatal]
